FAERS Safety Report 4570772-4 (Version None)
Quarter: 2005Q1

REPORT INFORMATION
  Report Type: 
  Country: None (occurrence: None)
  Receive Date: 20050202
  Receipt Date: 20050127
  Transmission Date: 20050727
  Serious: Yes (Other)
  Sender: FDA-Public Use
  Company Number: US_0501110381

PATIENT
  Age: 63 Year
  Weight: 73 kg

DRUGS (2)
  1. PEMETREXED [Suspect]
     Indication: MESOTHELIOMA MALIGNANT
     Dosage: 850 MG
     Dates: start: 20050108
  2. CISPLATIN [Concomitant]

REACTIONS (2)
  - BRADYCARDIA [None]
  - HEART RATE DECREASED [None]
